FAERS Safety Report 19183587 (Version 1)
Quarter: 2021Q2

REPORT INFORMATION
  Report Type: Spontaneous
  Country: US (occurrence: US)
  Receive Date: 20210427
  Receipt Date: 20210427
  Transmission Date: 20210717
  Serious: No
  Sender: FDA-Public Use
  Company Number: US-JNJFOC-20210443693

PATIENT
  Sex: Male

DRUGS (1)
  1. BALVERSA [Suspect]
     Active Substance: ERDAFITINIB
     Indication: TRANSITIONAL CELL CARCINOMA
     Dosage: ON BALVERSA FOR APPROXIMATELY 8 MONTHS
     Route: 048

REACTIONS (1)
  - Mucosal inflammation [Recovered/Resolved]

NARRATIVE: CASE EVENT DATE: 2020
